FAERS Safety Report 8832436 (Version 1)
Quarter: 2012Q4

REPORT INFORMATION
  Report Type: Spontaneous
  Country: US (occurrence: None)
  Receive Date: 20121005
  Receipt Date: 20121005
  Transmission Date: 20130627
  Serious: Yes (Other)
  Sender: FDA-Public Use
  Company Number: CPL-2012-0005

PATIENT
  Age: 40 Year
  Sex: Female

DRUGS (1)
  1. OXYCODONE AND ACETAMINOPHEN [Suspect]
     Indication: PRODUCT USED FOR UNKNOWN INDICATION
     Route: 045

REACTIONS (3)
  - Fungal rhinitis [None]
  - Nasal necrosis [None]
  - Drug abuse [None]
